FAERS Safety Report 8834534 (Version 1)
Quarter: 2012Q4

REPORT INFORMATION
  Report Type: 
  Country: IT (occurrence: IT)
  Receive Date: 20121010
  Receipt Date: 20121010
  Transmission Date: 20130627
  Serious: Yes (Hospitalization)
  Sender: FDA-Public Use
  Company Number: IT-PFIZER INC-2012232386

PATIENT
  Age: 78 Year
  Sex: Female

DRUGS (11)
  1. TENORMIN [Suspect]
     Indication: HYPERTENSION
     Dosage: 100 mg, daily
     Route: 048
     Dates: start: 20040101
  2. TENORMIN [Suspect]
     Dosage: 0.5 DF, Daily
     Route: 048
  3. TENORMIN [Suspect]
     Dosage: 0.25 DF, Daily
     Route: 048
  4. DOXAZOSIN MESILATE [Suspect]
     Indication: HYPERTENSION
     Dosage: 4 mg, daily
     Route: 048
     Dates: start: 20080101, end: 20120905
  5. AMLODIPINE [Suspect]
     Indication: HYPERTENSION
     Dosage: 20/5 mg, daily
     Route: 048
     Dates: start: 20120228, end: 20120906
  6. LASIX [Suspect]
     Indication: HYPERTENSION
     Dosage: 25 mg, 2x/day
     Route: 048
     Dates: start: 20080101
  7. ALDACTONE [Suspect]
     Indication: HYPERTENSION
     Dosage: 100 mg, daily
     Route: 048
     Dates: start: 20090101
  8. SIMVASTATIN [Concomitant]
     Indication: PRODUCT USED FOR UNKNOWN INDICATION
     Dosage: UNK
     Route: 065
  9. CALCIUM CARBONATE [Concomitant]
     Indication: PRODUCT USED FOR UNKNOWN INDICATION
     Dosage: UNK
     Route: 065
  10. CARDIOASPIRIN [Concomitant]
     Indication: PRODUCT USED FOR UNKNOWN INDICATION
     Dosage: 100 mg
     Route: 065
  11. FOSAVANCE [Concomitant]
     Indication: PRODUCT USED FOR UNKNOWN INDICATION
     Dosage: 70 mg/5600 I.U
     Route: 048

REACTIONS (4)
  - Hypotension [Recovered/Resolved]
  - Blood urea increased [Unknown]
  - Blood potassium increased [Unknown]
  - Blood creatinine increased [Unknown]
